FAERS Safety Report 7166144-9 (Version None)
Quarter: 2010Q4

REPORT INFORMATION
  Report Type: 
  Country: None (occurrence: None)
  Receive Date: 20101216
  Receipt Date: 20101207
  Transmission Date: 20110411
  Serious: Yes (Hospitalization, Other)
  Sender: FDA-Public Use
  Company Number: US-JNJFOC-20101204095

PATIENT
  Age: 85 Year
  Sex: Male

DRUGS (11)
  1. FENTANYL-100 [Suspect]
     Indication: BACK PAIN
     Dosage: 3 MONTHS
     Route: 062
  2. FENTANYL-100 [Suspect]
     Route: 062
  3. FENTANYL-100 [Suspect]
     Indication: MUSCULOSKELETAL CHEST PAIN
     Dosage: 3 MONTHS
     Route: 062
  4. FENTANYL-100 [Suspect]
     Route: 062
  5. OXYCODONE [Suspect]
     Indication: BACK PAIN
     Dosage: 15-30MG EVERY 4 HOUR AS NEEDED
     Route: 065
  6. OXYCODONE [Suspect]
     Indication: MUSCULOSKELETAL CHEST PAIN
     Dosage: 15-30MG EVERY 4 HOUR AS NEEDED
     Route: 065
  7. FLOMAX [Concomitant]
     Route: 065
  8. RANITIDINE [Concomitant]
     Route: 065
  9. PREVACID [Concomitant]
     Route: 065
  10. SENNA [Concomitant]
     Dosage: 2 TABS 3 TIMES A DAY
     Route: 065
  11. COLACE [Concomitant]
     Route: 065

REACTIONS (1)
  - DELIRIUM [None]
